FAERS Safety Report 25557096 (Version 1)
Quarter: 2025Q3

REPORT INFORMATION
  Report Type: Spontaneous
  Country: US (occurrence: None)
  Receive Date: 20250715
  Receipt Date: 20250715
  Transmission Date: 20251020
  Serious: No
  Sender: FDA-CTU
  Company Number: None

PATIENT
  Age: 70 Year
  Sex: Male

DRUGS (1)
  1. LENALIDOMIDE [Suspect]
     Active Substance: LENALIDOMIDE
     Indication: Plasma cell myeloma
     Dosage: 10 MG QD ORAL
     Route: 048
     Dates: start: 20230201

REACTIONS (4)
  - Abdominal pain [None]
  - Nausea [None]
  - Vomiting [None]
  - Abdominal discomfort [None]

NARRATIVE: CASE EVENT DATE: 20250710
